FAERS Safety Report 19894791 (Version 7)
Quarter: 2022Q3

REPORT INFORMATION
  Report Type: Report from Study
  Country: US (occurrence: US)
  Receive Date: 20210928
  Receipt Date: 20220913
  Transmission Date: 20221027
  Serious: No
  Sender: FDA-Public Use
  Company Number: NVSC2021US219107

PATIENT
  Age: 62 Year
  Sex: Male
  Weight: 81.64 kg

DRUGS (2)
  1. ENTRESTO [Suspect]
     Active Substance: SACUBITRIL\VALSARTAN
     Indication: Pulmonary embolism
     Dosage: 50 MG, BID (24/26MG)
     Route: 048
     Dates: start: 202108
  2. UNSPECIFIED INGREDIENT [Concomitant]
     Active Substance: UNSPECIFIED INGREDIENT
     Indication: Product used for unknown indication
     Dosage: UNK
     Route: 065

REACTIONS (9)
  - Weight decreased [Recovering/Resolving]
  - Weight increased [Unknown]
  - Hypersomnia [Recovering/Resolving]
  - Psychomotor hyperactivity [Recovering/Resolving]
  - Feeling abnormal [Unknown]
  - Fatigue [Unknown]
  - Dizziness [Unknown]
  - Ligament sprain [Recovering/Resolving]
  - Product dose omission issue [Unknown]

NARRATIVE: CASE EVENT DATE: 20220601
